FAERS Safety Report 14413327 (Version 1)
Quarter: 2018Q1

REPORT INFORMATION
  Report Type: Spontaneous
  Country: US (occurrence: US)
  Receive Date: 20180119
  Receipt Date: 20180119
  Transmission Date: 20180509
  Serious: Yes (Hospitalization)
  Sender: FDA-Public Use
  Company Number: None

PATIENT
  Age: 70 Year
  Sex: Female
  Weight: 103.3 kg

DRUGS (23)
  1. COREG [Concomitant]
     Active Substance: CARVEDILOL
  2. BENADRYL [Suspect]
     Active Substance: DIPHENHYDRAMINE HYDROCHLORIDE
     Indication: PAIN
     Route: 042
  3. APAP [Concomitant]
     Active Substance: ACETAMINOPHEN
  4. PROAMATIN [Concomitant]
  5. PRILOSEC [Concomitant]
     Active Substance: OMEPRAZOLE MAGNESIUM
  6. NORCO [Suspect]
     Active Substance: ACETAMINOPHEN\HYDROCODONE BITARTRATE
     Indication: PAIN
     Dosage: 5/325 MG X 2 ONCE PO
     Route: 048
  7. HALDOL [Suspect]
     Active Substance: HALOPERIDOL
  8. VERSED [Suspect]
     Active Substance: MIDAZOLAM HYDROCHLORIDE
  9. VITAMIN B6 [Concomitant]
     Active Substance: PYRIDOXINE HYDROCHLORIDE
  10. PERICOLACE [Concomitant]
  11. HYDROMORPHONE [Suspect]
     Active Substance: HYDROMORPHONE
  12. DULCOLAX NOS [Concomitant]
     Active Substance: BISACODYL OR DOCUSATE SODIUM
  13. ECOTRIN [Concomitant]
     Active Substance: ASPIRIN
  14. CHRONULAC [Concomitant]
     Active Substance: LACTULOSE
  15. MIRALAX [Concomitant]
     Active Substance: POLYETHYLENE GLYCOL 3350
  16. LIPITOR [Concomitant]
     Active Substance: ATORVASTATIN CALCIUM
  17. RENALVITE [Concomitant]
  18. VITAMIN D [Concomitant]
     Active Substance: CHOLECALCIFEROL
  19. COLACE [Concomitant]
     Active Substance: DOCUSATE SODIUM
  20. SYNTHROID [Concomitant]
     Active Substance: LEVOTHYROXINE SODIUM
  21. NEXIUM [Concomitant]
     Active Substance: ESOMEPRAZOLE MAGNESIUM
  22. DESYREL [Concomitant]
     Active Substance: TRAZODONE HYDROCHLORIDE
  23. PROVENTIL [Concomitant]
     Active Substance: ALBUTEROL

REACTIONS (6)
  - Clostridium difficile infection [None]
  - Lactic acidosis [None]
  - Dialysis [None]
  - Hypotension [None]
  - Sedation [None]
  - Depressed level of consciousness [None]

NARRATIVE: CASE EVENT DATE: 20171031
